FAERS Safety Report 9045282 (Version 1)
Quarter: 2013Q1

REPORT INFORMATION
  Report Type: Report from Study
  Country: US (occurrence: US)
  Receive Date: 20130131
  Receipt Date: 20130131
  Transmission Date: 20140127
  Serious: No
  Sender: FDA-Public Use
  Company Number: US-ABBOTT-12P-163-0992032-00

PATIENT
  Age: 31 Year
  Sex: Female

DRUGS (8)
  1. HUMIRA [Suspect]
     Indication: CROHN^S DISEASE
     Dates: start: 20120906, end: 20120906
  2. HUMIRA [Suspect]
     Dates: start: 20120907, end: 20120907
  3. HUMIRA [Suspect]
     Dates: start: 20120921
  4. NEURONTIN [Concomitant]
     Indication: PRODUCT USED FOR UNKNOWN INDICATION
  5. PROZAC [Concomitant]
     Indication: DEPRESSION
  6. ASACOL [Concomitant]
     Indication: CROHN^S DISEASE
  7. ENTOCORT [Concomitant]
     Indication: CROHN^S DISEASE
     Dosage: DAILY
  8. DEXILANT [Concomitant]
     Indication: GASTROOESOPHAGEAL REFLUX DISEASE

REACTIONS (11)
  - Fatigue [Recovering/Resolving]
  - Pain [Recovering/Resolving]
  - Contusion [Recovered/Resolved]
  - Contusion [Recovered/Resolved]
  - Contusion [Recovered/Resolved]
  - Contusion [Recovered/Resolved]
  - Fatigue [Recovering/Resolving]
  - Pain [Recovering/Resolving]
  - Contusion [Recovering/Resolving]
  - Contusion [Recovering/Resolving]
  - Contusion [Recovering/Resolving]
